FAERS Safety Report 4925463-4 (Version None)
Quarter: 2006Q1

REPORT INFORMATION
  Report Type: 
  Country: None (occurrence: None)
  Receive Date: 20060228
  Receipt Date: 20050224
  Transmission Date: 20060701
  Serious: No
  Sender: FDA-Public Use
  Company Number: US-GLAXOSMITHKLINE-A0547143A

PATIENT
  Age: 58 Year
  Sex: Female

DRUGS (6)
  1. LAMICTAL [Suspect]
     Indication: BIPOLAR DISORDER
     Dosage: 100MG PER DAY
     Route: 048
     Dates: start: 20050101
  2. SYNTHROID [Concomitant]
  3. ATIVAN [Concomitant]
  4. TEMAZEPAM [Concomitant]
  5. PAXIL [Concomitant]
  6. XANAX [Concomitant]

REACTIONS (10)
  - FUNGAL INFECTION [None]
  - GENITAL ERYTHEMA [None]
  - GENITAL RASH [None]
  - HOT FLUSH [None]
  - POLLAKIURIA [None]
  - PRURITUS GENITAL [None]
  - SKIN IRRITATION [None]
  - VAGINAL DISCHARGE [None]
  - VULVOVAGINAL DRYNESS [None]
  - VULVOVAGINAL MYCOTIC INFECTION [None]
